FAERS Safety Report 25146475 (Version 1)
Quarter: 2025Q1

REPORT INFORMATION
  Report Type: Spontaneous
  Country: CA (occurrence: None)
  Receive Date: 20250331
  Receipt Date: 20250331
  Transmission Date: 20250409
  Serious: Yes (Life-Threatening, Hospitalization, Disabling)
  Sender: FDA-CTU
  Company Number: None

PATIENT
  Age: 41 Year
  Sex: Female
  Weight: 58.06 kg

DRUGS (1)
  1. MIRENA [Suspect]
     Active Substance: LEVONORGESTREL

REACTIONS (7)
  - Euphoric mood [None]
  - Fluid retention [None]
  - Sleep disorder [None]
  - Self-injurious ideation [None]
  - Suicidal ideation [None]
  - Anxiety [None]
  - Complication associated with device [None]

NARRATIVE: CASE EVENT DATE: 20231205
